FAERS Safety Report 10172004 (Version 2)
Quarter: 2014Q2

REPORT INFORMATION
  Report Type: Spontaneous
  Country: US (occurrence: US)
  Receive Date: 20140515
  Receipt Date: 20140619
  Transmission Date: 20141212
  Serious: Yes (Other)
  Sender: FDA-Public Use
  Company Number: US-PFIZER INC-2014130843

PATIENT
  Age: 50 Year
  Sex: Female

DRUGS (3)
  1. LIPITOR [Suspect]
     Indication: LOW DENSITY LIPOPROTEIN INCREASED
     Dosage: 10 MG, DAILY
     Route: 048
     Dates: start: 200110, end: 200504
  2. LIPITOR [Suspect]
     Indication: CARDIOVASCULAR EVENT PROPHYLAXIS
  3. XANAX [Concomitant]
     Indication: ANXIETY
     Dosage: 0.5 MG, DAILY
     Dates: start: 1996, end: 2006

REACTIONS (1)
  - Type 2 diabetes mellitus [Not Recovered/Not Resolved]
